FAERS Safety Report 6623535-X (Version None)
Quarter: 2010Q1

REPORT INFORMATION
  Report Type: 
  Country: None (occurrence: None)
  Receive Date: 20100223
  Receipt Date: 20091029
  Transmission Date: 20100710
  Serious: No
  Sender: FDA-Public Use
  Company Number: 8054021

PATIENT
  Sex: Female
  Weight: 104.7 kg

DRUGS (7)
  1. CERTOLIZUMAB PEGOL (UCB, INC) [Suspect]
     Indication: CROHN'S DISEASE
     Dosage: SUBCUTANEOUS
     Route: 058
     Dates: start: 20091009
  2. COLESTID [Concomitant]
  3. PENTASA [Concomitant]
  4. TEGRETOL [Concomitant]
  5. PREDNISONE TAB [Concomitant]
  6. KLONOPIN [Concomitant]
  7. VISTARIL [Concomitant]

REACTIONS (4)
  - CHEST DISCOMFORT [None]
  - DYSPEPSIA [None]
  - DYSPHAGIA [None]
  - RASH PRURITIC [None]
